FAERS Safety Report 5630559-8 (Version None)
Quarter: 2008Q1

REPORT INFORMATION
  Report Type: 
  Country: None (occurrence: None)
  Receive Date: 20080219
  Receipt Date: 20080205
  Transmission Date: 20080703
  Serious: Yes (Death, Life-Threatening, Congenital Anomaly)
  Sender: FDA-Public Use
  Company Number: A0668207A

PATIENT
  Sex: Male
  Weight: 2.8 kg

DRUGS (13)
  1. PAXIL [Suspect]
     Indication: ANXIETY
     Dosage: 20MG PER DAY
     Dates: start: 20020304, end: 20020531
  2. PAXIL CR [Suspect]
     Indication: ANXIETY
     Dosage: 12.5MG PER DAY
     Dates: start: 20020601, end: 20030325
  3. PRILOSEC [Concomitant]
  4. PRENATAL VITAMINS [Concomitant]
     Dates: start: 20020531, end: 20021223
  5. AMOXICILLIN [Concomitant]
     Dates: start: 20020603, end: 20030121
  6. PROPOXYPHENE NAPSYLATE AND ACETAMINOPHEN [Concomitant]
     Dates: start: 20020705, end: 20020725
  7. AUGMENTIN '125' [Concomitant]
     Dates: start: 20020705, end: 20020805
  8. TERAZOL 7 [Concomitant]
     Dates: start: 20020805, end: 20020915
  9. ACETAMINOPHEN AND HYDROCODONE BITARTRATE [Concomitant]
     Dates: start: 20021008, end: 20021028
  10. SULFAMETHOXAZOLE AND TRIMETHOPRIM [Concomitant]
     Dates: start: 20021008, end: 20021022
  11. MACROBID [Concomitant]
     Dates: start: 20021014, end: 20030129
  12. LORTAB [Concomitant]
     Dates: start: 20021118, end: 20021201
  13. HEMOCYTE [Concomitant]
     Dates: start: 20021207, end: 20030209

REACTIONS (17)
  - AFFECTIVE DISORDER [None]
  - ANXIETY [None]
  - ATRIAL SEPTAL DEFECT [None]
  - CARDIAC FAILURE [None]
  - CARDIAC VALVE DISEASE [None]
  - COUGH [None]
  - CYANOSIS [None]
  - DRUG EXPOSURE DURING PREGNANCY [None]
  - DYSPNOEA [None]
  - FOETAL CARDIAC DISORDER [None]
  - PAIN [None]
  - PULMONARY HAEMORRHAGE [None]
  - PULMONARY OEDEMA [None]
  - PULMONARY VASCULAR DISORDER [None]
  - RESPIRATORY ARREST [None]
  - SCAR [None]
  - VISCERAL CONGESTION [None]
